FAERS Safety Report 11994914 (Version 1)
Quarter: 2016Q1

REPORT INFORMATION
  Report Type: Spontaneous
  Country: JP (occurrence: JP)
  Receive Date: 20160203
  Receipt Date: 20160203
  Transmission Date: 20160526
  Serious: Yes (Other)
  Sender: FDA-Public Use
  Company Number: JP-PFIZER INC-2016052872

PATIENT
  Age: 86 Year
  Sex: Female

DRUGS (1)
  1. CABASER [Suspect]
     Active Substance: CABERGOLINE
     Dosage: 1 MG, 1X/DAY (AFTER BREAKFAST)
     Route: 048

REACTIONS (3)
  - Chest discomfort [Unknown]
  - Pleural effusion [Unknown]
  - Nephrotic syndrome [Unknown]
